FAERS Safety Report 8996229 (Version 1)
Quarter: 2013Q1

REPORT INFORMATION
  Report Type: Report from Study
  Country: US (occurrence: US)
  Receive Date: 20130103
  Receipt Date: 20130103
  Transmission Date: 20140127
  Serious: Yes (Other)
  Sender: FDA-Public Use
  Company Number: US-US-EMD SERONO, INC.-7184732

PATIENT
  Sex: Female

DRUGS (5)
  1. REBIF [Suspect]
     Indication: MULTIPLE SCLEROSIS
     Route: 058
     Dates: start: 20110426
  2. METHYLPREDNISOLONE [Concomitant]
     Indication: MULTIPLE SCLEROSIS
     Dosage: HOUR LONG
  3. IBUPROFEN [Concomitant]
     Indication: PREMEDICATION
  4. ADVIL [Concomitant]
     Indication: PREMEDICATION
  5. TYLENOL [Concomitant]
     Indication: PREMEDICATION

REACTIONS (7)
  - Meniscus injury [Not Recovered/Not Resolved]
  - Fall [Not Recovered/Not Resolved]
  - Night sweats [Unknown]
  - Osteoarthritis [Unknown]
  - Multiple sclerosis relapse [Not Recovered/Not Resolved]
  - Injection site bruising [Unknown]
  - Injection site haemorrhage [Unknown]
